FAERS Safety Report 8126326-6 (Version None)
Quarter: 2012Q1

REPORT INFORMATION
  Report Type: 
  Country: None (occurrence: None)
  Receive Date: 20120209
  Receipt Date: 20120208
  Transmission Date: 20120608
  Serious: Yes (Other)
  Sender: FDA-Public Use
  Company Number: US-ROCHE-1009157

PATIENT
  Sex: Male

DRUGS (1)
  1. ZELBORAF [Suspect]
     Indication: PRODUCT USED FOR UNKNOWN INDICATION

REACTIONS (6)
  - DYSPNOEA AT REST [None]
  - MELANOCYTIC NAEVUS [None]
  - DIZZINESS [None]
  - BRAIN NEOPLASM [None]
  - JOINT SWELLING [None]
  - DIARRHOEA [None]
